FAERS Safety Report 23774372 (Version 2)
Quarter: 2025Q3

REPORT INFORMATION
  Report Type: Spontaneous
  Country: CO (occurrence: CO)
  Receive Date: 20240423
  Receipt Date: 20250703
  Transmission Date: 20251021
  Serious: Yes (Hospitalization)
  Sender: Steriscience PTE
  Company Number: CO-STERISCIENCE B.V.-2024-ST-000478

PATIENT
  Age: 44 Year
  Sex: Male

DRUGS (6)
  1. ONDANSETRON [Suspect]
     Active Substance: ONDANSETRON
     Indication: Nausea
     Route: 065
  2. ONDANSETRON [Suspect]
     Active Substance: ONDANSETRON
     Indication: Vomiting
  3. HALOPERIDOL [Suspect]
     Active Substance: HALOPERIDOL
     Indication: Nausea
     Route: 065
  4. HALOPERIDOL [Suspect]
     Active Substance: HALOPERIDOL
     Indication: Vomiting
  5. SCOPOLAMINE [Concomitant]
     Active Substance: SCOPOLAMINE
     Indication: Visceral pain
     Route: 065
  6. OCTREOTIDE [Concomitant]
     Active Substance: OCTREOTIDE
     Indication: Malignant gastrointestinal obstruction
     Route: 065

REACTIONS (1)
  - Drug ineffective [Unknown]
